FAERS Safety Report 8382937-4 (Version None)
Quarter: 2012Q2

REPORT INFORMATION
  Report Type: 
  Country: None (occurrence: None)
  Receive Date: 20120524
  Receipt Date: 20120515
  Transmission Date: 20120825
  Serious: No
  Sender: FDA-Public Use
  Company Number: US-ROXANE LABORATORIES, INC.-2012-RO-01000RO

PATIENT
  Sex: Male

DRUGS (1)
  1. DIPHENOXYLATE HCL AND ATROPINE SULFATE [Suspect]
     Route: 048

REACTIONS (2)
  - COUGH [None]
  - DYSPNOEA [None]
